FAERS Safety Report 19752333 (Version 1)
Quarter: 2021Q3

REPORT INFORMATION
  Report Type: Report from Study
  Country: FR (occurrence: FR)
  Receive Date: 20210826
  Receipt Date: 20210826
  Transmission Date: 20211014
  Serious: Yes (Other)
  Sender: FDA-Public Use
  Company Number: FR-VIIV HEALTHCARE LIMITED-FR2021GSK180257

PATIENT

DRUGS (4)
  1. INTERFERON ALFA?N1. [Suspect]
     Active Substance: INTERFERON ALFA-N1
     Indication: ADULT T-CELL LYMPHOMA/LEUKAEMIA
     Dosage: UNK (5?6 MILLION IU/M^2/DAY)
  2. TRIMETHOPRIM + SULFAMETHOXAZOL [Concomitant]
     Active Substance: SULFAMERAZINE SODIUM\TRIMETHOPRIM
     Indication: ANTIBIOTIC PROPHYLAXIS
     Dosage: UNK (160?800 MG THREE TIMES PER WEEK)
  3. IVERMECTIN. [Concomitant]
     Active Substance: IVERMECTIN
     Indication: ANTIBIOTIC PROPHYLAXIS
     Dosage: UNK (200 UG/KG)
  4. ZIDOVUDINE. [Suspect]
     Active Substance: ZIDOVUDINE
     Indication: ADULT T-CELL LYMPHOMA/LEUKAEMIA
     Dosage: 300 MG, TID (HIGH DOSE)

REACTIONS (6)
  - Herpes ophthalmic [Unknown]
  - Off label use [Unknown]
  - Herpes simplex [Unknown]
  - Keratitis [Unknown]
  - Product use in unapproved indication [Unknown]
  - Overdose [Unknown]
